FAERS Safety Report 4931467-8 (Version None)
Quarter: 2006Q1

REPORT INFORMATION
  Report Type: 
  Country: None (occurrence: None)
  Receive Date: 20060228
  Receipt Date: 20060215
  Transmission Date: 20060701
  Serious: Yes (Hospitalization, Other)
  Sender: FDA-Public Use
  Company Number: 2006024297

PATIENT
  Age: 55 Year
  Sex: Male
  Weight: 68.0396 kg

DRUGS (3)
  1. VIAGRA [Suspect]
     Indication: ERECTILE DYSFUNCTION
  2. NEURONTIN [Concomitant]
  3. ANALGESICS (ANALGESICS) [Concomitant]

REACTIONS (6)
  - ABDOMINAL DISTENSION [None]
  - DENTAL CARIES [None]
  - DENTURE WEARER [None]
  - DRUG INEFFECTIVE [None]
  - FEELING ABNORMAL [None]
  - HEPATIC FUNCTION ABNORMAL [None]
